FAERS Safety Report 5397917-0 (Version None)
Quarter: 2007Q3

REPORT INFORMATION
  Report Type: 
  Country: None (occurrence: None)
  Receive Date: 20070726
  Receipt Date: 20070725
  Transmission Date: 20080115
  Serious: Yes (Other)
  Sender: FDA-Public Use
  Company Number: AU-BRISTOL-MYERS SQUIBB COMPANY-13828934

PATIENT
  Age: 86 Year
  Sex: Female

DRUGS (4)
  1. AVAPRO [Suspect]
     Indication: HYPERTENSION
     Route: 048
     Dates: start: 19980101
  2. CARTIA XT [Suspect]
  3. INDAPAMIDE [Suspect]
  4. INDERAL [Suspect]
     Dates: start: 19850101

REACTIONS (9)
  - ABASIA [None]
  - CEREBROVASCULAR ACCIDENT [None]
  - DISTURBANCE IN ATTENTION [None]
  - DYSPNOEA [None]
  - FACIAL PALSY [None]
  - HYPERTENSION [None]
  - MALAISE [None]
  - NASOPHARYNGITIS [None]
  - VERTIGO [None]
